FAERS Safety Report 7780640-2 (Version None)
Quarter: 2011Q3

REPORT INFORMATION
  Report Type: 
  Country: None (occurrence: None)
  Receive Date: 20110927
  Receipt Date: 20110331
  Transmission Date: 20111222
  Serious: No
  Sender: FDA-Public Use
  Company Number: US-BRISTOL-MYERS SQUIBB COMPANY-15509912

PATIENT
  Age: 70 Year
  Sex: Female
  Weight: 46 kg

DRUGS (1)
  1. AVAPRO [Suspect]
     Indication: HYPERTENSION
     Dosage: INCREASED TO 300MG,M360. INTIAL DOSE:150MG
     Route: 048
     Dates: start: 20100824

REACTIONS (5)
  - THERMAL BURN [None]
  - CIRCUMSTANCE OR INFORMATION CAPABLE OF LEADING TO MEDICATION ERROR [None]
  - FATIGUE [None]
  - FEELING DRUNK [None]
  - DIZZINESS [None]
